FAERS Safety Report 4941078-6 (Version None)
Quarter: 2006Q1

REPORT INFORMATION
  Report Type: 
  Country: None (occurrence: None)
  Receive Date: 20060310
  Receipt Date: 20060310
  Transmission Date: 20060701
  Serious: Yes (Hospitalization)
  Sender: FDA-Public Use
  Company Number: None

PATIENT
  Age: 80 Year
  Sex: Male
  Weight: 97.0698 kg

DRUGS (2)
  1. MS CONTIN [Suspect]
     Indication: BACK PAIN
     Dosage: 15 MG   Q8H   PO
     Route: 048
     Dates: start: 20060206, end: 20060226
  2. METHOCARBAMOL [Suspect]
     Indication: MUSCLE SPASMS
     Dosage: 599 NG  QHS   PO
     Route: 048
     Dates: start: 20060206, end: 20060226

REACTIONS (3)
  - ASTHENIA [None]
  - FALL [None]
  - URINARY TRACT INFECTION [None]
